FAERS Safety Report 9445358 (Version 1)
Quarter: 2013Q3

REPORT INFORMATION
  Report Type: Spontaneous
  Country: US (occurrence: US)
  Receive Date: 20130807
  Receipt Date: 20130807
  Transmission Date: 20140515
  Serious: No
  Sender: FDA-Public Use
  Company Number: US-BAYER-2013-088710

PATIENT
  Age: 22 Year
  Sex: Female

DRUGS (2)
  1. BEYAZ [Suspect]
     Indication: CONTRACEPTION
     Dosage: 1 PILL DAILY
     Route: 048
     Dates: start: 201306
  2. ACCUTANE [Concomitant]
     Dosage: UNK UNK, QD

REACTIONS (2)
  - Drug dose omission [None]
  - Polymenorrhoea [None]
